FAERS Safety Report 4774505-8 (Version None)
Quarter: 2005Q3

REPORT INFORMATION
  Report Type: 
  Country: None (occurrence: None)
  Receive Date: 20050920
  Receipt Date: 20050907
  Transmission Date: 20060218
  Serious: Yes (Other)
  Sender: FDA-Public Use
  Company Number: GXKR2005DK01560

PATIENT
  Age: 69 Year
  Sex: Male

DRUGS (4)
  1. PENICILLIN G SODIUM [Suspect]
     Dosage: 20 MIU, QD
  2. CLARITHROMYCIN [Suspect]
     Indication: ULCER
     Dosage: 1 G, BID
  3. AMOXICILLIN TRIHYDRATE [Suspect]
     Indication: ULCER
     Dosage: 0.5 G, BID
  4. GENTAMICIN [Suspect]
     Indication: ENDOCARDITIS

REACTIONS (9)
  - ACTIVATED PARTIAL THROMBOPLASTIN TIME PROLONGED [None]
  - BLOOD CREATININE INCREASED [None]
  - BLOOD UREA INCREASED [None]
  - EPISTAXIS [None]
  - GASTRIC HAEMORRHAGE [None]
  - HAEMORRHAGE [None]
  - HAEMORRHAGIC DIATHESIS [None]
  - OESOPHAGEAL HAEMORRHAGE [None]
  - ULCER [None]
